FAERS Safety Report 6482396-2 (Version None)
Quarter: 2009Q4

REPORT INFORMATION
  Report Type: 
  Country: None (occurrence: None)
  Receive Date: 20091208
  Receipt Date: 20090423
  Transmission Date: 20100525
  Serious: No
  Sender: FDA-Public Use
  Company Number: US-AMGEN-TCS344289

PATIENT
  Sex: Female

DRUGS (1)
  1. ENBREL [Suspect]
     Indication: PSORIASIS
     Route: 058
     Dates: start: 20090416

REACTIONS (4)
  - DIZZINESS [None]
  - FEELING HOT [None]
  - FLUSHING [None]
  - INJECTION SITE PAIN [None]
